FAERS Safety Report 14191372 (Version 1)
Quarter: 2017Q4

REPORT INFORMATION
  Report Type: Spontaneous
  Country: FR (occurrence: FR)
  Receive Date: 20171115
  Receipt Date: 20171115
  Transmission Date: 20180321
  Serious: Yes (Hospitalization, Other)
  Sender: FDA-Public Use
  Company Number: FR-009507513-1710FRA014525

PATIENT
  Age: 12 Year
  Sex: Male

DRUGS (1)
  1. STROMECTOL [Suspect]
     Active Substance: IVERMECTIN
     Dosage: UNKNOWN
     Route: 048

REACTIONS (3)
  - Confusional state [Recovered/Resolved]
  - Lethargy [Recovered/Resolved]
  - Cognitive disorder [Recovered/Resolved]
